FAERS Safety Report 22706809 (Version 2)
Quarter: 2024Q1

REPORT INFORMATION
  Report Type: Spontaneous
  Country: JP (occurrence: JP)
  Receive Date: 20230714
  Receipt Date: 20240226
  Transmission Date: 20240410
  Serious: Yes (Hospitalization, Other)
  Sender: FDA-Public Use
  Company Number: JP-BRISTOL-MYERS SQUIBB COMPANY-2023-098370

PATIENT
  Age: 69 Year
  Sex: Male
  Weight: 65.6 kg

DRUGS (13)
  1. LENADEX [Suspect]
     Active Substance: DEXAMETHASONE ACETATE
     Indication: Product used for unknown indication
  2. OPDIVO [Suspect]
     Active Substance: NIVOLUMAB
     Indication: Non-small cell lung cancer
  3. HYDROCORTISONE [Suspect]
     Active Substance: HYDROCORTISONE
     Indication: Adrenocorticotropic hormone deficiency
  4. METFORMIN [Concomitant]
     Active Substance: METFORMIN HYDROCHLORIDE
     Indication: Product used for unknown indication
     Route: 048
  5. METFORMIN [Concomitant]
     Active Substance: METFORMIN HYDROCHLORIDE
     Route: 048
  6. IPRAGLIFLOZIN [Concomitant]
     Active Substance: IPRAGLIFLOZIN
     Indication: Product used for unknown indication
     Route: 048
  7. INSULIN NOS [Concomitant]
     Active Substance: INSULIN NOS
     Indication: Diabetes mellitus
  8. INSULIN NOS [Concomitant]
     Active Substance: INSULIN NOS
  9. INSULIN NOS [Concomitant]
     Active Substance: INSULIN NOS
  10. INSULIN NOS [Concomitant]
     Active Substance: INSULIN NOS
  11. INSULIN NOS [Concomitant]
     Active Substance: INSULIN NOS
  12. INSULIN NOS [Concomitant]
     Active Substance: INSULIN NOS
  13. INSULIN NOS [Concomitant]
     Active Substance: INSULIN NOS

REACTIONS (3)
  - Type 2 diabetes mellitus [Recovering/Resolving]
  - Diabetic ketoacidosis [Unknown]
  - Condition aggravated [Recovering/Resolving]
